FAERS Safety Report 8484821-4 (Version None)
Quarter: 2012Q3

REPORT INFORMATION
  Report Type: 
  Country: None (occurrence: None)
  Receive Date: 20120703
  Receipt Date: 20120629
  Transmission Date: 20120928
  Serious: Yes (Death, Hospitalization)
  Sender: FDA-Public Use
  Company Number: FR-PFIZER INC-HQWYE512805SEP03

PATIENT
  Age: 89 Year
  Sex: Male

DRUGS (6)
  1. CORDARONE [Suspect]
     Dosage: UNK, 5 TIMES PER WEEK
     Route: 048
     Dates: end: 20030718
  2. DILTIAZEM HCL [Suspect]
     Dosage: 60 MG, 2X/DAY
     Route: 048
     Dates: end: 20030701
  3. PREDNISONE TAB [Suspect]
     Dosage: 3 MG, 1X/DAY
     Route: 048
  4. HEPARIN [Suspect]
     Indication: ANTICOAGULANT THERAPY
     Dosage: UNK
     Route: 065
  5. IKOREL [Suspect]
     Dosage: 10 MG, 2X/DAY
     Route: 048
  6. PENTOXIFYLLINE [Suspect]
     Dosage: 10 MG, 1X/DAY
     Route: 048

REACTIONS (3)
  - CARDIAC ARREST [None]
  - HAEMATOMA [None]
  - HEPATITIS CHOLESTATIC [None]
